FAERS Safety Report 20354701 (Version 1)
Quarter: 2022Q1

REPORT INFORMATION
  Report Type: Spontaneous
  Country: US (occurrence: US)
  Receive Date: 20220120
  Receipt Date: 20220120
  Transmission Date: 20220423
  Serious: No
  Sender: FDA-Public Use
  Company Number: US-DSJP-DSU-2022-101952AA

PATIENT
  Sex: Male

DRUGS (1)
  1. TURALIO [Suspect]
     Active Substance: PEXIDARTINIB HYDROCHLORIDE
     Indication: Connective tissue neoplasm
     Dosage: 200MG QAM, 400MG QPM
     Route: 048
     Dates: start: 20211001

REACTIONS (2)
  - Skin discolouration [Recovered/Resolved]
  - Hair colour changes [Recovered/Resolved]
